FAERS Safety Report 4597331-1 (Version None)
Quarter: 2005Q1

REPORT INFORMATION
  Report Type: 
  Country: None (occurrence: None)
  Receive Date: 20050225
  Receipt Date: 20050225
  Transmission Date: 20050727
  Serious: Yes (Hospitalization)
  Sender: FDA-Public Use
  Company Number: None

PATIENT
  Age: 47 Year
  Sex: Female

DRUGS (1)
  1. GEMTUZUMAB [Suspect]
     Indication: LEUKAEMIA
     Dates: start: 20050222, end: 20050222

REACTIONS (2)
  - CHILLS [None]
  - PYREXIA [None]
